FAERS Safety Report 8152576-9 (Version None)
Quarter: 2012Q1

REPORT INFORMATION
  Report Type: 
  Country: None (occurrence: None)
  Receive Date: 20120221
  Receipt Date: 20120208
  Transmission Date: 20120608
  Serious: Yes (Hospitalization, Congenital Anomaly)
  Sender: FDA-Public Use
  Company Number: DE-TEVA-321689GER

PATIENT
  Age: 0 Year
  Sex: Male

DRUGS (1)
  1. COTRIM [Suspect]
     Route: 064

REACTIONS (1)
  - CLEFT LIP AND PALATE [None]
